FAERS Safety Report 7919576-2 (Version None)
Quarter: 2011Q4

REPORT INFORMATION
  Report Type: 
  Country: None (occurrence: None)
  Receive Date: 20111116
  Receipt Date: 20111116
  Transmission Date: 20120403
  Serious: Yes (Hospitalization)
  Sender: FDA-Public Use
  Company Number: None

PATIENT
  Age: 56 Year
  Sex: Male
  Weight: 106.4 kg

DRUGS (11)
  1. BENAZEPRIL HYDROCHLORIDE [Concomitant]
  2. METFORMIN HCL [Concomitant]
  3. BACTRIM [Suspect]
     Indication: STAPHYLOCOCCAL ABSCESS
     Dosage: ? 800 BID PO RECENT
     Route: 048
  4. ANDROGEL [Concomitant]
  5. INSULIN [Concomitant]
  6. ACTOS [Suspect]
     Indication: DIABETES MELLITUS
     Dosage: 15/500 BID PO CHRONIC
     Route: 048
  7. PHENERGAN [Concomitant]
  8. VICODIN [Concomitant]
  9. ZOFRAN [Concomitant]
  10. ASPIRIN [Concomitant]
  11. COREG [Concomitant]

REACTIONS (3)
  - NAUSEA [None]
  - VOMITING [None]
  - TRANSAMINASES INCREASED [None]
